FAERS Safety Report 7926743-0 (Version None)
Quarter: 2011Q4

REPORT INFORMATION
  Report Type: 
  Country: None (occurrence: None)
  Receive Date: 20111118
  Receipt Date: 20111111
  Transmission Date: 20120403
  Serious: Yes (Death)
  Sender: FDA-Public Use
  Company Number: JP-GENZYME-THYM-1002897

PATIENT
  Sex: Male
  Weight: 15 kg

DRUGS (23)
  1. VANCOMYCIN HYCHLORIDE [Concomitant]
     Indication: CYTOMEGALOVIRUS INFECTION
     Dosage: UNK
     Dates: start: 20100525, end: 20100529
  2. FILGRASTIM [Concomitant]
     Indication: NEUROBLASTOMA
     Dosage: UNK
     Dates: start: 20100525, end: 20100526
  3. ACYCLOVIR [Concomitant]
     Indication: CYTOMEGALOVIRUS INFECTION
     Dosage: UNK
     Dates: start: 20100525, end: 20100529
  4. VANCOMYCIN [Concomitant]
     Indication: CYTOMEGALOVIRUS INFECTION
     Dosage: UNK
     Dates: start: 20100526, end: 20100528
  5. HUMANSERUM [Concomitant]
     Indication: CARDIAC FAILURE
     Dosage: UNK
     Dates: start: 20100526, end: 20100526
  6. PLATELETS, CONCENTRATED [Concomitant]
     Indication: NEUROBLASTOMA
     Dosage: UNK
     Dates: start: 20100525, end: 20100529
  7. POLYMYCIN B SULFATE [Concomitant]
     Indication: CYTOMEGALOVIRUS INFECTION
     Dosage: UNK
     Dates: start: 20100525, end: 20100529
  8. URSODIOL [Concomitant]
     Indication: RENAL IMPAIRMENT
     Dosage: UNK
     Dates: start: 20100525, end: 20100529
  9. DALTEPARIN SODIUM [Concomitant]
     Indication: PROPHYLAXIS
     Dosage: UNK
     Dates: start: 20100525, end: 20100529
  10. CEFOPERAZONE SODIUM [Concomitant]
     Indication: CYTOMEGALOVIRUS INFECTION
     Dosage: UNK
     Dates: start: 20100525, end: 20100529
  11. FUROSEMIDE [Concomitant]
     Indication: RENAL IMPAIRMENT
     Dosage: UNK
     Dates: start: 20100525, end: 20100526
  12. MICAFUNGIN SODIUM [Concomitant]
     Indication: CYTOMEGALOVIRUS INFECTION
     Dosage: UNK
     Dates: start: 20100525, end: 20100529
  13. VORICONAZOLE [Concomitant]
     Indication: CYTOMEGALOVIRUS INFECTION
     Dosage: UNK
     Dates: start: 20100525, end: 20100529
  14. GANCICLOVIR [Concomitant]
     Indication: CYTOMEGALOVIRUS INFECTION
     Dosage: UNK
     Dates: start: 20100525, end: 20100525
  15. FUROSEMIDE [Concomitant]
     Indication: CARDIAC FAILURE
  16. VANCOMYCIN [Concomitant]
     Indication: CARDIAC FAILURE
     Dosage: UNK
     Dates: start: 20100526, end: 20100528
  17. FLUDARA [Suspect]
     Indication: BONE MARROW CONDITIONING REGIMEN
     Dosage: UNK MG, QD
     Route: 065
     Dates: start: 20100528, end: 20100529
  18. FREEZE-DRIED ION-EXCHANGE-RESI [Concomitant]
     Indication: CYTOMEGALOVIRUS INFECTION
     Dosage: UNK
     Dates: start: 20100525, end: 20100525
  19. METHYLPREDNISOLONE SODIUM SUCCINATE [Concomitant]
     Indication: PREMEDICATION
     Dosage: UNK
     Dates: start: 20100528, end: 20100529
  20. THYMOGLOBULIN [Suspect]
     Indication: BONE MARROW CONDITIONING REGIMEN
     Dosage: 25 MG, QD
     Route: 042
     Dates: start: 20100528, end: 20100529
  21. SULBACTAM SODIUM [Concomitant]
     Indication: CYTOMEGALOVIRUS INFECTION
     Dosage: UNK
     Dates: start: 20100525, end: 20100529
  22. CARPERITIDE [Concomitant]
     Indication: CARDIAC FAILURE
     Dosage: UNK
     Dates: start: 20100525, end: 20100529
  23. RED BLOOD CELLS, CONCENTRATED [Concomitant]
     Indication: NEUROBLASTOMA
     Dosage: UNK
     Dates: start: 20100525, end: 20100529

REACTIONS (2)
  - CARDIAC FAILURE [None]
  - CARDIOMYOPATHY [None]
